FAERS Safety Report 9400896 (Version 1)
Quarter: 2013Q3

REPORT INFORMATION
  Report Type: Spontaneous
  Country: US (occurrence: None)
  Receive Date: 20130712
  Receipt Date: 20130712
  Transmission Date: 20140515
  Serious: Yes (Hospitalization, Other)
  Sender: FDA-Public Use
  Company Number: None

PATIENT
  Age: 70 Year
  Sex: Female
  Weight: 39.46 kg

DRUGS (2)
  1. MYCAMINE [Suspect]
     Dates: start: 20130301, end: 20130305
  2. FLUCONAZOLE [Suspect]
     Dates: start: 20130306, end: 20130313

REACTIONS (8)
  - Device related infection [None]
  - Fungal infection [None]
  - Fall [None]
  - Fluid retention [None]
  - Confusional state [None]
  - Amnesia [None]
  - Altered visual depth perception [None]
  - Hallucination [None]
